FAERS Safety Report 6562292-2 (Version None)
Quarter: 2010Q1

REPORT INFORMATION
  Report Type: 
  Country: None (occurrence: None)
  Receive Date: 20100130
  Receipt Date: 20091102
  Transmission Date: 20100710
  Serious: No
  Sender: FDA-Public Use
  Company Number: US-ABBOTT-09P-163-0606779-00

PATIENT
  Sex: Male
  Weight: 92.616 kg

DRUGS (28)
  1. HUMIRA [Suspect]
     Indication: RHEUMATOID ARTHRITIS
     Route: 058
     Dates: start: 20090601
  2. METHADONE [Concomitant]
     Indication: BACK PAIN
     Route: 048
  3. VALIUM [Concomitant]
     Indication: MUSCLE SPASMS
     Dosage: TID AND 1-4 HS PRN
     Route: 048
  4. LEVORPHANOL TARTRATE [Concomitant]
     Indication: BACK PAIN
     Route: 048
  5. SPIRIVA [Concomitant]
     Indication: CHRONIC OBSTRUCTIVE PULMONARY DISEASE
     Route: 055
  6. SPIRIVA [Concomitant]
     Indication: EMPHYSEMA
  7. ADVAIR DISKUS 100/50 [Concomitant]
     Indication: CHRONIC OBSTRUCTIVE PULMONARY DISEASE
     Dosage: 250/50, 2 IN 1 DAY
     Route: 055
  8. ADVAIR DISKUS 100/50 [Concomitant]
     Indication: EMPHYSEMA
  9. ALBUTEROL [Concomitant]
     Indication: CHRONIC OBSTRUCTIVE PULMONARY DISEASE
     Dosage: 2 PUFFS QID PRN
  10. ALBUTEROL [Concomitant]
     Indication: EMPHYSEMA
  11. PLAQUENIL [Concomitant]
     Indication: RHEUMATOID ARTHRITIS
     Route: 048
  12. SULFASALAZINE [Concomitant]
     Indication: RHEUMATOID ARTHRITIS
     Route: 048
  13. FOLIC ACID [Concomitant]
     Indication: VITAMIN SUPPLEMENTATION
     Route: 048
  14. METHOTREXATE [Concomitant]
     Indication: RHEUMATOID ARTHRITIS
     Route: 048
  15. OXYGEN [Concomitant]
     Indication: CHRONIC OBSTRUCTIVE PULMONARY DISEASE
     Route: 055
  16. OXYGEN [Concomitant]
     Indication: EMPHYSEMA
  17. SENNA [Concomitant]
     Indication: CONSTIPATION PROPHYLAXIS
     Route: 048
  18. DOCUSATE [Concomitant]
     Indication: CONSTIPATION PROPHYLAXIS
     Route: 048
  19. PROPYLENE GLYCOL [Concomitant]
     Indication: CONSTIPATION
     Dosage: 1 IN 1 DAY, DAILY
     Route: 048
  20. TESTOSTERONE CIPRIONATE [Concomitant]
     Indication: HORMONE REPLACEMENT THERAPY
     Dosage: 200MG/ML      .05ML Q10 DAYS
     Route: 058
  21. LEVITRA [Concomitant]
     Indication: ERECTILE DYSFUNCTION
     Dosage: 1/2 TAB AS NEEDED
     Route: 048
  22. CALCIUM W/D [Concomitant]
     Indication: MINERAL SUPPLEMENTATION
     Route: 048
  23. ALBUTEROL [Concomitant]
     Indication: INHALATION THERAPY
     Route: 055
  24. WELLBUTRIN [Concomitant]
     Indication: EX-TOBACCO USER
     Route: 048
     Dates: start: 20090801
  25. ISONIAZID [Concomitant]
     Indication: TUBERCULOSIS
     Route: 048
     Dates: start: 20090512
  26. ISONIAZID [Concomitant]
     Dosage: QD
     Route: 048
  27. NIZORAL [Concomitant]
     Indication: RASH
     Route: 061
  28. KENALOG [Concomitant]
     Indication: RASH
     Route: 061

REACTIONS (2)
  - HYPOAESTHESIA [None]
  - PARAESTHESIA [None]
